FAERS Safety Report 15806089 (Version 3)
Quarter: 2019Q1

REPORT INFORMATION
  Report Type: Report from Study
  Country: IT (occurrence: IT)
  Receive Date: 20190110
  Receipt Date: 20190131
  Transmission Date: 20190417
  Serious: Yes (Other)
  Sender: FDA-Public Use
  Company Number: IT-TEVA-2019-IT-995316

PATIENT
  Age: 49 Year
  Sex: Female

DRUGS (5)
  1. DOCETAXEL 100MG/M2 [Suspect]
     Active Substance: DOCETAXEL
     Route: 065
  2. EPIRUBICINE [Suspect]
     Active Substance: EPIRUBICIN
     Route: 065
  3. CYCLOPHOSPHAMIDE. [Suspect]
     Active Substance: CYCLOPHOSPHAMIDE
     Route: 065
  4. FLUOROURACILE [Suspect]
     Active Substance: FLUOROURACIL
     Route: 065
  5. LONQUEX [Suspect]
     Active Substance: LIPEGFILGRASTIM
     Route: 065

REACTIONS (2)
  - Neutropenia [Recovering/Resolving]
  - Neurotoxicity [Unknown]
